FAERS Safety Report 10896970 (Version 2)
Quarter: 2015Q1

REPORT INFORMATION
  Report Type: Spontaneous
  Country: BR (occurrence: BR)
  Receive Date: 20150309
  Receipt Date: 20150313
  Transmission Date: 20150721
  Serious: Yes (Hospitalization, Other)
  Sender: FDA-Public Use
  Company Number: BR-AMGEN-BRASP2015018967

PATIENT
  Age: 61 Year
  Sex: Female
  Weight: 66 kg

DRUGS (14)
  1. CALCIUM [Concomitant]
     Active Substance: CALCIUM
     Dosage: UNK
  2. LIPITOR [Concomitant]
     Active Substance: ATORVASTATIN CALCIUM
     Dosage: UNK
     Dates: start: 2012
  3. METHOTREXATE SODIUM. [Suspect]
     Active Substance: METHOTREXATE SODIUM
     Indication: RHEUMATOID ARTHRITIS
     Dosage: 25 MG PER WEEK OR 1 ML INJECTABLE OR 10 TABLETS OF 2.5MG (25MG) ONCE WEEKLY
     Route: 065
     Dates: start: 1990, end: 20150303
  4. PREDNISOLONE. [Concomitant]
     Active Substance: PREDNISOLONE
  5. LYRICA [Concomitant]
     Active Substance: PREGABALIN
     Indication: SPINAL DISORDER
  6. VITAMIN D                          /00107901/ [Concomitant]
     Active Substance: ERGOCALCIFEROL
     Dosage: UNK
     Dates: start: 2013
  7. ENBREL [Suspect]
     Active Substance: ETANERCEPT
     Indication: RHEUMATOID ARTHRITIS
     Dosage: 25 MG, ONCE A WEEK
     Route: 065
     Dates: start: 2011, end: 20150224
  8. CONCOR [Concomitant]
     Active Substance: BISOPROLOL FUMARATE
     Dosage: UNK
     Dates: start: 2012
  9. OSTEOBAN [Concomitant]
     Dosage: UNK
     Dates: start: 2012
  10. ENBREL [Suspect]
     Active Substance: ETANERCEPT
     Dosage: 25 MG, QWK
     Route: 065
     Dates: start: 2011
  11. ASPIRINA PREVENT [Concomitant]
     Active Substance: ASPIRIN
  12. DIOSMIN [Concomitant]
     Active Substance: DIOSMIN
     Dosage: UNK
  13. COLECALCIFEROL [Concomitant]
     Active Substance: CHOLECALCIFEROL
     Dosage: UNK
  14. HIGROTON [Concomitant]
     Active Substance: CHLORTHALIDONE

REACTIONS (8)
  - White blood cell count decreased [Unknown]
  - Capillary fragility [Recovered/Resolved]
  - Hypersensitivity [Unknown]
  - Dengue fever [Not Recovered/Not Resolved]
  - Platelet disorder [Recovered/Resolved]
  - Asthenia [Not Recovered/Not Resolved]
  - Haematoma [Recovered/Resolved]
  - Petechiae [Recovered/Resolved]

NARRATIVE: CASE EVENT DATE: 20150209
